FAERS Safety Report 8500901-9 (Version None)
Quarter: 2012Q3

REPORT INFORMATION
  Report Type: 
  Country: None (occurrence: None)
  Receive Date: 20120710
  Receipt Date: 20120703
  Transmission Date: 20120928
  Serious: Yes (Other)
  Sender: FDA-Public Use
  Company Number: PHHO2012DE009996

PATIENT
  Sex: Female

DRUGS (4)
  1. INC424 [Suspect]
     Indication: MYELOFIBROSIS
  2. EXJADE [Suspect]
     Indication: IRON OVERLOAD
     Dosage: 500 MG, TID
     Route: 048
  3. RED BLOOD CELLS [Concomitant]
  4. INC424 [Suspect]
     Indication: POLYCYTHAEMIA VERA
     Dosage: UNK
     Dates: start: 20111201

REACTIONS (2)
  - MACULAR DEGENERATION [None]
  - CATARACT [None]
